FAERS Safety Report 15020934 (Version 2)
Quarter: 2018Q2

REPORT INFORMATION
  Report Type: Spontaneous
  Country: US (occurrence: US)
  Receive Date: 20180618
  Receipt Date: 20180622
  Transmission Date: 20180711
  Serious: Yes (Hospitalization)
  Sender: FDA-Public Use
  Company Number: US-INCYTE CORPORATION-2018IN005831

PATIENT

DRUGS (2)
  1. JAKAFI [Suspect]
     Active Substance: RUXOLITINIB
     Indication: ACUTE LYMPHOCYTIC LEUKAEMIA
     Dosage: 2X25MG TABLETS, BID
     Route: 048
     Dates: start: 20180522
  2. JAKAFI [Suspect]
     Active Substance: RUXOLITINIB
     Dosage: 50 MG, BID
     Route: 048
     Dates: start: 20180524

REACTIONS (6)
  - Stomatitis [Unknown]
  - Off label use [Unknown]
  - Nausea [Unknown]
  - Drug administered to patient of inappropriate age [Unknown]
  - Fatigue [Unknown]
  - Abdominal discomfort [Unknown]
